FAERS Safety Report 6117147-4 (Version None)
Quarter: 2009Q1

REPORT INFORMATION
  Report Type: 
  Country: None (occurrence: None)
  Receive Date: 20090314
  Receipt Date: 20090107
  Transmission Date: 20090719
  Serious: No
  Sender: FDA-Public Use
  Company Number: US-ABBOTT-09P-163-0496449-00

PATIENT
  Sex: Female
  Weight: 49.032 kg

DRUGS (3)
  1. HUMIRA [Suspect]
     Indication: RHEUMATOID ARTHRITIS
     Route: 058
     Dates: start: 20071101, end: 20080101
  2. MEDROL [Concomitant]
     Indication: RHEUMATOID ARTHRITIS
     Dates: start: 19990101
  3. TETRACYCLINE [Concomitant]
     Indication: RHEUMATOID ARTHRITIS
     Dates: start: 19990101

REACTIONS (7)
  - BLOOD IMMUNOGLOBULIN G ABNORMAL [None]
  - DRUG TOXICITY [None]
  - HYPOGAMMAGLOBULINAEMIA [None]
  - ILL-DEFINED DISORDER [None]
  - PNEUMONIA [None]
  - SINUSITIS [None]
  - URINARY TRACT INFECTION [None]
